FAERS Safety Report 17578612 (Version 2)
Quarter: 2020Q1

REPORT INFORMATION
  Report Type: Spontaneous
  Country: BH (occurrence: BH)
  Receive Date: 20200324
  Receipt Date: 20200325
  Transmission Date: 20200409
  Serious: Yes (Other)
  Sender: FDA-Public Use
  Company Number: BH-ENDO PHARMACEUTICALS INC-2020-002492

PATIENT
  Age: 6 Year
  Sex: Male
  Weight: 24.5 kg

DRUGS (1)
  1. KETALAR [Suspect]
     Active Substance: KETAMINE HYDROCHLORIDE
     Indication: SEDATIVE THERAPY
     Dosage: 20 MG, SINGLE
     Route: 042

REACTIONS (1)
  - Generalised tonic-clonic seizure [Recovered/Resolved]
